FAERS Safety Report 16974830 (Version 1)
Quarter: 2019Q4

REPORT INFORMATION
  Report Type: Spontaneous
  Country: CA (occurrence: CA)
  Receive Date: 20191030
  Receipt Date: 20191030
  Transmission Date: 20200122
  Serious: Yes (Other)
  Sender: FDA-Public Use
  Company Number: CA-ABBVIE-19K-028-2979371-00

PATIENT
  Sex: Female

DRUGS (4)
  1. PREDNISONE. [Concomitant]
     Active Substance: PREDNISONE
     Indication: PRODUCT USED FOR UNKNOWN INDICATION
  2. HUMIRA [Suspect]
     Active Substance: ADALIMUMAB
     Indication: ANKYLOSING SPONDYLITIS
     Route: 058
     Dates: end: 20190918
  3. SULFASALAZINE. [Suspect]
     Active Substance: SULFASALAZINE
     Indication: PRODUCT USED FOR UNKNOWN INDICATION
     Route: 065
  4. METHOTREXATE. [Suspect]
     Active Substance: METHOTREXATE
     Indication: PRODUCT USED FOR UNKNOWN INDICATION
     Route: 048

REACTIONS (13)
  - Female sterilisation [Unknown]
  - Shoulder operation [Unknown]
  - Endometriosis [Unknown]
  - Cataract [Unknown]
  - Retinal vasculitis [Unknown]
  - Knee arthroplasty [Unknown]
  - Spondyloarthropathy [Unknown]
  - Explorative laparotomy [Unknown]
  - Hypersensitivity [Unknown]
  - Uveitis [Unknown]
  - Autoimmune thyroiditis [Unknown]
  - Hysterectomy [Unknown]
  - Therapeutic product effect decreased [Unknown]
